FAERS Safety Report 11361456 (Version 10)
Quarter: 2016Q1

REPORT INFORMATION
  Report Type: Report from Study
  Country: US (occurrence: US)
  Receive Date: 20150810
  Receipt Date: 20160222
  Transmission Date: 20160525
  Serious: Yes (Death, Other)
  Sender: FDA-Public Use
  Company Number: US-GSKJP-US2015110322AA

PATIENT
  Age: 66 Year
  Sex: Male
  Weight: 89 kg

DRUGS (1)
  1. UMECLIDINIUM BR+VILANTEROL TRIFENATATE [Suspect]
     Active Substance: UMECLIDINIUM BROMIDE\VILANTEROL TRIFENATATE
     Indication: CHRONIC OBSTRUCTIVE PULMONARY DISEASE
     Dosage: 1 PUFF(S), QD
     Route: 055
     Dates: start: 20150701, end: 20150726

REACTIONS (1)
  - Cardio-respiratory arrest [Fatal]

NARRATIVE: CASE EVENT DATE: 20150727
